FAERS Safety Report 5609131-1 (Version None)
Quarter: 2008Q1

REPORT INFORMATION
  Report Type: 
  Country: None (occurrence: None)
  Receive Date: 20080130
  Receipt Date: 20080130
  Transmission Date: 20080703
  Serious: Yes (Other)
  Sender: FDA-Public Use
  Company Number: None

PATIENT
  Age: 64 Year
  Sex: Female
  Weight: 68.0396 kg

DRUGS (2)
  1. FOSAMAX PLUS D [Suspect]
     Indication: OSTEOPENIA
     Dosage: 70MG ONCE WEEKLY ORAL
     Route: 048
     Dates: start: 20070801
  2. AMITRIPTYLINE HCL [Concomitant]

REACTIONS (1)
  - POLYMYALGIA RHEUMATICA [None]
